FAERS Safety Report 20985739 (Version 2)
Quarter: 2025Q3

REPORT INFORMATION
  Report Type: Report from Study
  Country: CA (occurrence: CA)
  Receive Date: 20220621
  Receipt Date: 20250811
  Transmission Date: 20251021
  Serious: Yes (Other)
  Sender: TAKEDA
  Company Number: CA-TAKEDA-2020TUS038324

PATIENT
  Age: 66 Year
  Sex: Female

DRUGS (7)
  1. VEDOLIZUMAB [Suspect]
     Active Substance: VEDOLIZUMAB
     Indication: Colitis ulcerative
  2. VEDOLIZUMAB [Suspect]
     Active Substance: VEDOLIZUMAB
     Dosage: 300 MILLIGRAM, Q4WEEKS
     Dates: start: 20201007
  3. VEDOLIZUMAB [Suspect]
     Active Substance: VEDOLIZUMAB
     Dosage: 300 MILLIGRAM, Q4WEEKS
  4. VEDOLIZUMAB [Suspect]
     Active Substance: VEDOLIZUMAB
     Dosage: 300 MILLIGRAM, Q4WEEKS
  5. CALCIUM [Concomitant]
     Active Substance: CALCIUM
  6. POTASSIUM [Concomitant]
     Active Substance: POTASSIUM
  7. ENTOCORT [Concomitant]
     Active Substance: BUDESONIDE
     Dates: start: 20210901, end: 20211222

REACTIONS (6)
  - Colitis ulcerative [Unknown]
  - Diarrhoea haemorrhagic [Recovered/Resolved]
  - Clostridium difficile infection [Unknown]
  - Abdominal pain lower [Recovered/Resolved]
  - Off label use [Unknown]
  - Vomiting [Recovered/Resolved]

NARRATIVE: CASE EVENT DATE: 20201007
